FAERS Safety Report 18928908 (Version 1)
Quarter: 2021Q1

REPORT INFORMATION
  Report Type: Spontaneous
  Country: US (occurrence: US)
  Receive Date: 20210223
  Receipt Date: 20210223
  Transmission Date: 20210420
  Serious: No
  Sender: FDA-Public Use
  Company Number: US-BAYER-2021-077507

PATIENT
  Age: 53 Year
  Sex: Female

DRUGS (8)
  1. STOOL SOFTENER (DOCUSATE) [Concomitant]
     Active Substance: DOCUSATE
  2. PREPARATION H [PHENOXYETHANOL;PROPYLENE GLYCOL] [Concomitant]
  3. METRAZOLE [Concomitant]
     Active Substance: METRONIDAZOLE
  4. GLYCEROL [Concomitant]
     Active Substance: GLYCERIN
  5. CARAFATE [Concomitant]
     Active Substance: SUCRALFATE
  6. COLACE [Concomitant]
     Active Substance: DOCUSATE SODIUM
  7. MIRALAX [Suspect]
     Active Substance: POLYETHYLENE GLYCOL 3350
     Indication: GASTROINTESTINAL DISORDER
     Dosage: 17 G
     Route: 048
  8. SENOKOT [Concomitant]
     Active Substance: SENNOSIDES

REACTIONS (2)
  - Therapeutic product effect delayed [Unknown]
  - Expired product administered [Unknown]
